FAERS Safety Report 19873446 (Version 5)
Quarter: 2021Q4

REPORT INFORMATION
  Report Type: Spontaneous
  Country: US (occurrence: US)
  Receive Date: 20210922
  Receipt Date: 20211027
  Transmission Date: 20220303
  Serious: Yes (Other)
  Sender: FDA-Public Use
  Company Number: US-PFIZER INC-202101192766

PATIENT
  Age: 76 Year
  Sex: Female
  Weight: 58.97 kg

DRUGS (1)
  1. PREMARIN [Suspect]
     Active Substance: ESTROGENS, CONJUGATED
     Dosage: QUANTITY FOR 90 DAYS: 42.5G

REACTIONS (6)
  - Pelvic infection [Unknown]
  - Haemorrhage [Unknown]
  - Urinary tract infection [Unknown]
  - Vaginal discharge [Unknown]
  - Cerebral disorder [Unknown]
  - Product dispensing error [Unknown]
